FAERS Safety Report 9832274 (Version 5)
Quarter: 2014Q2

REPORT INFORMATION
  Report Type: Spontaneous
  Country: US (occurrence: US)
  Receive Date: 20140121
  Receipt Date: 20140630
  Transmission Date: 20141212
  Serious: Yes (Disabling)
  Sender: FDA-Public Use
  Company Number: US-ACORDA-ACO_100019_2013

PATIENT
  Age: 84 Year
  Sex: Female
  Weight: 72.34 kg

DRUGS (9)
  1. AMPYRA [Suspect]
     Indication: GAIT DISTURBANCE
     Dosage: 10 MG, Q 12 HRS
     Route: 048
     Dates: start: 20131029, end: 201311
  2. AMPYRA [Suspect]
     Dosage: 10 MG, QD
     Route: 048
     Dates: start: 20131104
  3. AMPYRA [Suspect]
     Dosage: 10 MG, Q 12 HRS
     Route: 048
  4. AMPYRA [Suspect]
     Dosage: 10 MG, QD
     Route: 048
     Dates: end: 20140322
  5. AMPYRA [Suspect]
     Dosage: 10 MG, Q 12 HRS
     Route: 048
     Dates: start: 20140323
  6. AMPYRA [Suspect]
     Dosage: 10 MG, QD
     Route: 048
  7. AVONEX [Suspect]
     Indication: PRODUCT USED FOR UNKNOWN INDICATION
     Dosage: UNK
     Route: 065
  8. COPAXONE [Suspect]
     Indication: PRODUCT USED FOR UNKNOWN INDICATION
     Dosage: UNK, EVERY OTHER WEEK
     Route: 065
  9. MULTIVITAMIN [Concomitant]
     Indication: PRODUCT USED FOR UNKNOWN INDICATION
     Dosage: UNK,UNK
     Route: 065

REACTIONS (14)
  - Muscle spasticity [Recovering/Resolving]
  - Mobility decreased [Recovering/Resolving]
  - Joint lock [Recovering/Resolving]
  - Abasia [Recovered/Resolved]
  - Anxiety [Recovering/Resolving]
  - Nervousness [Recovering/Resolving]
  - Depression [Recovering/Resolving]
  - Tremor [Recovered/Resolved]
  - Dyspnoea [Recovering/Resolving]
  - Pain in extremity [Unknown]
  - Asthenia [Recovered/Resolved]
  - Fatigue [Unknown]
  - Paraesthesia [Recovering/Resolving]
  - Inappropriate schedule of drug administration [Unknown]
